FAERS Safety Report 11389851 (Version 5)
Quarter: 2016Q2

REPORT INFORMATION
  Report Type: Report from Study
  Country: NZ (occurrence: NZ)
  Receive Date: 20150818
  Receipt Date: 20160606
  Transmission Date: 20160815
  Serious: Yes (Other)
  Sender: FDA-Public Use
  Company Number: NZ-AMGEN-2014-1528

PATIENT
  Age: 78 Year
  Sex: Female
  Weight: 69.8 kg

DRUGS (28)
  1. PREDNISONE. [Suspect]
     Active Substance: PREDNISONE
     Indication: PLASMA CELL MYELOMA
     Dosage: 105 MG, PER CHEMO REGIM
     Route: 048
     Dates: start: 20140310, end: 20140606
  2. METFORMIN [Concomitant]
     Active Substance: METFORMIN HYDROCHLORIDE
     Indication: DIABETES MELLITUS
     Dosage: 850 MG, BID
     Route: 048
     Dates: start: 1995
  3. BENDROFLURAZIDE [Concomitant]
     Indication: HYPERTENSION
     Dosage: 2.5 MG, QD
     Route: 048
     Dates: start: 1999
  4. OVESTIN [Concomitant]
     Active Substance: ESTRIOL
     Indication: VULVOVAGINAL PRURITUS
     Dosage: UNK
     Route: 061
     Dates: start: 20140421
  5. CHOLECALCIFEROL [Concomitant]
     Active Substance: CHOLECALCIFEROL
     Indication: PROPHYLAXIS
     Dosage: 1.25 MG, QMO
     Route: 048
     Dates: start: 20140516
  6. PANADOL [Concomitant]
     Active Substance: ACETAMINOPHEN
     Indication: PYREXIA
  7. OMEPRAZOLE. [Concomitant]
     Active Substance: OMEPRAZOLE
     Indication: GASTROOESOPHAGEAL REFLUX DISEASE
     Dosage: 20 MG, QD
     Route: 048
     Dates: start: 1995
  8. CEFACLOR. [Concomitant]
     Active Substance: CEFACLOR
     Indication: URINARY TRACT INFECTION
     Dosage: 250 MG, QD
     Route: 048
     Dates: start: 2002
  9. IBRUFEN [Concomitant]
     Indication: ARTHRALGIA
     Dosage: 200 MG, BID
     Route: 048
     Dates: start: 20140425, end: 20140830
  10. CARFILZOMIB [Suspect]
     Active Substance: CARFILZOMIB
     Indication: PLASMA CELL MYELOMA
     Dosage: 27 MG/M2, PER CHEMO REGIM
     Route: 042
     Dates: start: 20140310, end: 20140624
  11. SIMVASTATIN. [Concomitant]
     Active Substance: SIMVASTATIN
     Indication: HYPERLIPIDAEMIA
     Dosage: 40 MG, QD
     Route: 048
     Dates: start: 2002
  12. PANADOL [Concomitant]
     Active Substance: ACETAMINOPHEN
     Indication: HEADACHE
  13. LISINOPRIL. [Concomitant]
     Active Substance: LISINOPRIL
     Indication: HYPERTENSION
     Dosage: 10 MG, QD
     Route: 048
     Dates: start: 1999
  14. FINASTERIDE. [Concomitant]
     Active Substance: FINASTERIDE
     Indication: NEURALGIA
     Dosage: 1.25 MG, QD
     Route: 048
     Dates: start: 2002
  15. VESICARE [Concomitant]
     Active Substance: SOLIFENACIN SUCCINATE
     Indication: URETHRAL SPASM
     Dosage: 5 MG, QD
     Route: 048
     Dates: start: 2005
  16. VENTOLIN [Concomitant]
     Active Substance: ALBUTEROL SULFATE
     Indication: ASTHMA
     Dosage: 200 MUG, AS NECESSARY
     Route: 055
     Dates: start: 2007
  17. SERETIDE [Concomitant]
     Active Substance: FLUTICASONE PROPIONATE\SALMETEROL XINAFOATE
     Indication: ASTHMA
     Dosage: 2 PUFF, QD
     Route: 055
     Dates: start: 2007
  18. PANADOL [Concomitant]
     Active Substance: ACETAMINOPHEN
     Indication: PAIN
     Dosage: 1 G, AS NECESSARY
     Route: 048
     Dates: start: 2007
  19. HUMALIN NPH INSULIN [Concomitant]
     Indication: DIABETES MELLITUS
     Dosage: 10 IU, BID
     Route: 058
     Dates: start: 2012
  20. ONDANSETRON [Concomitant]
     Active Substance: ONDANSETRON
     Indication: NAUSEA
     Dosage: UNK
     Route: 048
     Dates: start: 20140401
  21. MELPHALAN [Suspect]
     Active Substance: MELPHALAN
     Indication: PLASMA CELL MYELOMA
     Dosage: 10 MG, PER CHEMO REGIM
     Route: 048
     Dates: start: 20140310, end: 20140606
  22. LAXOL [Concomitant]
     Active Substance: CASTOR OIL
     Indication: CONSTIPATION
     Dosage: 2 UNK, BID
     Route: 048
     Dates: start: 2012
  23. DILTIAZEM [Concomitant]
     Active Substance: DILTIAZEM
     Indication: HYPERTENSION
     Dosage: 120 MG, QD
     Route: 048
     Dates: start: 2002
  24. ONDANSETRON [Concomitant]
     Active Substance: ONDANSETRON
     Indication: VOMITING
  25. ALLOPURINOL. [Concomitant]
     Active Substance: ALLOPURINOL
     Indication: PROPHYLAXIS
     Dosage: 100 MG, QD
     Route: 048
     Dates: start: 20140221, end: 20140917
  26. ACYCLOVIR. [Concomitant]
     Active Substance: ACYCLOVIR
     Indication: PROPHYLAXIS
     Dosage: 400 MG, BID
     Route: 048
     Dates: start: 20140310, end: 20140917
  27. METOCLOPRAMIDE. [Concomitant]
     Active Substance: METOCLOPRAMIDE
     Indication: NAUSEA
     Dosage: 10 MG, AS NECESSARY
     Route: 048
     Dates: start: 20140310
  28. GAVISCON [Concomitant]
     Active Substance: ALUMINUM HYDROXIDE\MAGNESIUM CARBONATE
     Indication: DYSPEPSIA
     Dosage: 10 ML, TID
     Route: 031
     Dates: start: 20140611

REACTIONS (1)
  - Hypoxia [Recovered/Resolved]

NARRATIVE: CASE EVENT DATE: 20140626
